FAERS Safety Report 8265558-3 (Version None)
Quarter: 2012Q2

REPORT INFORMATION
  Report Type: 
  Country: None (occurrence: None)
  Receive Date: 20120406
  Receipt Date: 20120329
  Transmission Date: 20120825
  Serious: Yes (Hospitalization)
  Sender: FDA-Public Use
  Company Number: FR-TEVA-328985ISR

PATIENT
  Sex: Female

DRUGS (5)
  1. FLUOROURACIL [Suspect]
     Indication: COLON CANCER
     Dosage: BOLUS1/D
     Route: 042
     Dates: start: 20120222, end: 20120222
  2. FLUOROURACIL [Suspect]
     Route: 042
     Dates: start: 20120222, end: 20120223
  3. OXALIPLATIN [Suspect]
     Indication: COLON CANCER
     Route: 042
     Dates: start: 20120223
  4. ONDANSETRON HCL [Suspect]
     Indication: COLON CANCER
     Route: 042
     Dates: start: 20120222
  5. LEUCOVORIN CALCIUM [Suspect]
     Indication: COLON CANCER
     Dosage: MBQ
     Route: 042
     Dates: start: 20120222

REACTIONS (1)
  - ACUTE MYOCARDIAL INFARCTION [None]
